FAERS Safety Report 6763943-X (Version None)
Quarter: 2010Q2

REPORT INFORMATION
  Report Type: 
  Country: None (occurrence: None)
  Receive Date: 20100610
  Receipt Date: 20100503
  Transmission Date: 20101027
  Serious: Yes (Death, Hospitalization, Disabling, Other)
  Sender: FDA-Public Use
  Company Number: FR-CELGENEUS-056-21880-09121514

PATIENT
  Sex: Male
  Weight: 74 kg

DRUGS (18)
  1. REVLIMID [Suspect]
     Indication: MULTIPLE MYELOMA
     Route: 048
     Dates: start: 20090804, end: 20090825
  2. REVLIMID [Suspect]
     Dosage: REDUCED DOSE
     Route: 048
     Dates: start: 20090903, end: 20090929
  3. REVLIMID [Suspect]
     Route: 048
     Dates: start: 20090701
  4. DEXAMETHASONE [Concomitant]
     Indication: MULTIPLE MYELOMA
     Route: 065
     Dates: start: 20090804
  5. DEXAMETHASONE [Concomitant]
  6. EPO [Concomitant]
     Indication: PROPHYLAXIS
     Route: 065
  7. LOVENOX [Concomitant]
     Indication: PROPHYLAXIS
     Route: 065
  8. ZYLORIC [Interacting]
     Indication: PROPHYLAXIS
     Route: 065
  9. AUGMENTIN '125' [Concomitant]
     Route: 065
  10. TAVANIC [Interacting]
     Route: 065
  11. CARDENSIEL [Concomitant]
     Indication: VENTRICULAR DYSFUNCTION
     Route: 065
     Dates: start: 20091003
  12. HYDROCORTISONE [Concomitant]
     Indication: DRUG USE FOR UNKNOWN INDICATION
     Dosage: 2 IN MORNING AND 1 AT NOON
     Route: 065
  13. NEXIUM [Concomitant]
     Indication: DRUG USE FOR UNKNOWN INDICATION
     Route: 065
  14. ZALDIAR [Concomitant]
     Route: 065
  15. ZALDIAR [Concomitant]
  16. LEXOMYL [Concomitant]
     Indication: DRUG USE FOR UNKNOWN INDICATION
     Route: 065
  17. GAVISCON [Concomitant]
     Indication: DRUG USE FOR UNKNOWN INDICATION
     Route: 065
  18. BETAGAN [Concomitant]
     Indication: DRUG USE FOR UNKNOWN INDICATION
     Dosage: 0.5-1 DROPS

REACTIONS (2)
  - MENINGITIS [None]
  - MULTIPLE MYELOMA [None]
